FAERS Safety Report 24442790 (Version 2)
Quarter: 2024Q4

REPORT INFORMATION
  Report Type: Spontaneous
  Country: JP (occurrence: JP)
  Receive Date: 20241016
  Receipt Date: 20241017
  Transmission Date: 20250115
  Serious: No
  Sender: ROCHE
  Company Number: JP-CHUGAI-2024014699

PATIENT
  Age: 9 Year
  Sex: Male
  Weight: 60.0 kg

DRUGS (1)
  1. HEMLIBRA [Suspect]
     Active Substance: EMICIZUMAB-KXWH
     Indication: Haemophilia A without inhibitors
     Dosage: 180 MILLIGRAM, ONCE/2WEEKS
     Route: 058

REACTIONS (2)
  - Haemorrhage [Recovered/Resolved]
  - Therapeutic response decreased [Unknown]
